FAERS Safety Report 5582962-2 (Version None)
Quarter: 2008Q1

REPORT INFORMATION
  Report Type: 
  Country: None (occurrence: None)
  Receive Date: 20080107
  Receipt Date: 20080102
  Transmission Date: 20080703
  Serious: Yes (Hospitalization)
  Sender: FDA-Public Use
  Company Number: US-ASTRAZENECA-2008UW00060

PATIENT
  Age: 89 Year
  Sex: Female
  Weight: 64 kg

DRUGS (17)
  1. LISINOPRIL AND HYDROCHLOROTHIAZIDE [Suspect]
     Route: 048
  2. TOPROL-XL [Suspect]
     Route: 048
  3. AROMASIN [Suspect]
     Indication: BREAST CANCER FEMALE
     Route: 048
     Dates: start: 20060809
  4. LIPITOR [Suspect]
  5. GEMFIBROZIL [Suspect]
  6. ASPIRIN [Concomitant]
  7. CALCIUM [Concomitant]
  8. NORVASC [Concomitant]
  9. PLAVIX [Concomitant]
  10. CHONDROITIN SULFATE [Concomitant]
  11. LEVOTHYROXINE SODIUM [Concomitant]
  12. LIDOCAINE HYDROCHLORIDE [Concomitant]
  13. LIDODERM [Concomitant]
  14. VITAMIN CAP [Concomitant]
  15. OMEGA-3 [Concomitant]
  16. SALICYLATES [Concomitant]
  17. ZETIA [Concomitant]

REACTIONS (11)
  - ASTHENIA [None]
  - BACK PAIN [None]
  - BLOOD CREATININE INCREASED [None]
  - BURSITIS [None]
  - CONFUSIONAL STATE [None]
  - DIZZINESS [None]
  - FATIGUE [None]
  - HYPOACUSIS [None]
  - INTERVERTEBRAL DISC DEGENERATION [None]
  - VISION BLURRED [None]
  - VISUAL DISTURBANCE [None]
